FAERS Safety Report 7441568-0 (Version None)
Quarter: 2011Q2

REPORT INFORMATION
  Report Type: 
  Country: None (occurrence: None)
  Receive Date: 20110428
  Receipt Date: 20110420
  Transmission Date: 20111010
  Serious: Yes (Other)
  Sender: FDA-Public Use
  Company Number: US-PFIZER INC-2011086481

PATIENT
  Sex: Female

DRUGS (10)
  1. LASIX [Suspect]
     Dosage: UNK
     Dates: start: 20110309
  2. CEFTIN [Suspect]
     Indication: PNEUMONIA
     Dosage: UNK
     Dates: start: 20110309
  3. NEXIUM [Concomitant]
  4. DABIGATRAN [Suspect]
     Dosage: UNK
     Dates: start: 20110309, end: 20110323
  5. CRESTOR [Suspect]
     Dosage: UNK
     Dates: end: 20110323
  6. ZETIA [Concomitant]
  7. DRONEDARONE HCL [Suspect]
     Indication: ATRIAL FIBRILLATION
     Dosage: 400 MG, 2X/DAY
     Route: 048
     Dates: start: 20110309, end: 20110323
  8. AZITHROMYCIN [Suspect]
     Dosage: UNK MG, 2X/DAY
     Dates: start: 20110309
  9. CARDIZEM [Suspect]
     Dosage: UNK
     Dates: start: 20110309
  10. AMIODARONE [Concomitant]

REACTIONS (5)
  - DIZZINESS [None]
  - DIARRHOEA [None]
  - NAUSEA [None]
  - HEPATOCELLULAR INJURY [None]
  - FATIGUE [None]
